FAERS Safety Report 5764160-2 (Version None)
Quarter: 2008Q2

REPORT INFORMATION
  Report Type: 
  Country: None (occurrence: None)
  Receive Date: 20080605
  Receipt Date: 20080521
  Transmission Date: 20081010
  Serious: Yes (Disabling)
  Sender: FDA-Public Use
  Company Number: APP200800438

PATIENT
  Sex: Male

DRUGS (3)
  1. BUPIVACAINE HCL [Suspect]
     Indication: MUSCULOSKELETAL PAIN
     Dosage: CONTINUOUS VIA PAIN PUMP
     Dates: start: 20060511
  2. SENSORCAINE-MPF WITH EPINEPHRINE [Suspect]
     Indication: MUSCULOSKELETAL PAIN
     Dosage: CONTINUOUS VIA PAIN PUMP
     Dates: start: 20060511
  3. STRYKER PAIN PUMP [Concomitant]
     Indication: MUSCULOSKELETAL PAIN
     Dates: start: 20060511

REACTIONS (3)
  - CHONDROLYSIS [None]
  - MUSCULOSKELETAL DISCOMFORT [None]
  - MUSCULOSKELETAL PAIN [None]
